FAERS Safety Report 9716700 (Version 1)
Quarter: 2013Q4

REPORT INFORMATION
  Report Type: Spontaneous
  Country: US (occurrence: US)
  Receive Date: 20131127
  Receipt Date: 20131127
  Transmission Date: 20140711
  Serious: No
  Sender: FDA-Public Use
  Company Number: US-ENDO PHARMACEUTICALS INC.-HYDR20120006

PATIENT
  Sex: Male

DRUGS (1)
  1. HYDROCORTISONE TABLETS [Suspect]
     Indication: ADDISON^S DISEASE
     Route: 048

REACTIONS (3)
  - Musculoskeletal stiffness [Not Recovered/Not Resolved]
  - Parosmia [Not Recovered/Not Resolved]
  - Muscular weakness [Not Recovered/Not Resolved]
